FAERS Safety Report 9802099 (Version 1)
Quarter: 2014Q1

REPORT INFORMATION
  Report Type: Report from Study
  Country: AR (occurrence: AR)
  Receive Date: 20140107
  Receipt Date: 20140107
  Transmission Date: 20141002
  Serious: Yes (Hospitalization, Other)
  Sender: FDA-Public Use
  Company Number: PHHY2014AR001449

PATIENT
  Sex: Female

DRUGS (3)
  1. DIOVAN [Suspect]
     Indication: HYPERTENSION
     Dosage: 1.5 TABLET (320/12.5 MG, AS REPORTED) DAILY
     Route: 048
  2. RASILEZ [Concomitant]
     Indication: HYPERTENSION
     Dosage: 1 TABLET (150 MG), DAILY
     Route: 048
  3. ANTICOAGULANTS [Concomitant]
     Dosage: UNK UKN, UNK
     Route: 048

REACTIONS (2)
  - Hip fracture [Recovered/Resolved]
  - Wrong technique in drug usage process [Unknown]
